FAERS Safety Report 18461441 (Version 1)
Quarter: 2020Q4

REPORT INFORMATION
  Report Type: Spontaneous
  Country: US (occurrence: US)
  Receive Date: 20201104
  Receipt Date: 20201104
  Transmission Date: 20210114
  Serious: No
  Sender: FDA-Public Use
  Company Number: US-BAUSCH-BL-2020-031218

PATIENT
  Sex: Female

DRUGS (1)
  1. DUOBRII [Suspect]
     Active Substance: HALOBETASOL PROPIONATE\TAZAROTENE
     Indication: PSORIASIS
     Dosage: 0.01/0.045 PERCENT, FOR THE PAST 5-6 DAYS
     Route: 061
     Dates: start: 202010

REACTIONS (2)
  - Application site erythema [Not Recovered/Not Resolved]
  - Drug ineffective [Unknown]

NARRATIVE: CASE EVENT DATE: 202010
